FAERS Safety Report 10203297 (Version 1)
Quarter: 2014Q2

REPORT INFORMATION
  Report Type: Spontaneous
  Country: JP (occurrence: JP)
  Receive Date: 20140529
  Receipt Date: 20140529
  Transmission Date: 20141212
  Serious: Yes (Hospitalization)
  Sender: FDA-Public Use
  Company Number: JP-ROCHE-1408077

PATIENT
  Age: 65 Year
  Sex: Female

DRUGS (1)
  1. RIVOTRIL [Suspect]
     Indication: EPILEPSY
     Route: 048

REACTIONS (1)
  - Hypocalcaemia [Unknown]
